FAERS Safety Report 8091505-3 (Version None)
Quarter: 2012Q1

REPORT INFORMATION
  Report Type: 
  Country: None (occurrence: None)
  Receive Date: 20120131
  Receipt Date: 20120128
  Transmission Date: 20120608
  Serious: No
  Sender: FDA-Public Use
  Company Number: US-PFIZER INC-2012023564

PATIENT
  Sex: Female
  Weight: 81.633 kg

DRUGS (7)
  1. LYRICA [Concomitant]
     Indication: EXOSTOSIS
     Dosage: 150 MG, UNK
  2. CHANTIX [Suspect]
     Indication: SMOKING CESSATION THERAPY
     Dosage: 0.5 MG, 1X/DAY
     Route: 048
     Dates: start: 20120125
  3. PERCOCET [Concomitant]
     Indication: EXOSTOSIS
     Dosage: 10/325 MG, UNK
  4. MELOXICAM [Concomitant]
     Indication: EXOSTOSIS
     Dosage: 15 MG, UNK
  5. FIORICET [Concomitant]
     Indication: HEADACHE
     Dosage: UNK
  6. BENICAR [Concomitant]
     Indication: HYPERTENSION
     Dosage: 20 MG, UNK
  7. TOPAMAX [Concomitant]
     Indication: CONVULSION
     Dosage: 50 MG, UNK

REACTIONS (3)
  - CHEST DISCOMFORT [None]
  - COUGH [None]
  - TOBACCO USER [None]
